FAERS Safety Report 11862013 (Version 1)
Quarter: 2015Q4

REPORT INFORMATION
  Report Type: Spontaneous
  Country: US (occurrence: US)
  Receive Date: 20151222
  Receipt Date: 20151222
  Transmission Date: 20160305
  Serious: No
  Sender: FDA-Public Use
  Company Number: US-ROCHE-1072527

PATIENT
  Sex: Male

DRUGS (7)
  1. INCIVEK [Suspect]
     Active Substance: TELAPREVIR
     Indication: CHRONIC HEPATITIS C
     Route: 065
     Dates: start: 20120516
  2. RIBAVIRIN. [Suspect]
     Active Substance: RIBAVIRIN
     Indication: CHRONIC HEPATITIS C
     Dosage: DIALY IN DIVIDED DOSES
     Route: 048
     Dates: start: 20120516
  3. FILGRASTIM [Concomitant]
     Active Substance: FILGRASTIM
     Route: 042
  4. REBETOL [Concomitant]
     Active Substance: RIBAVIRIN
  5. PEGASYS [Suspect]
     Active Substance: PEGINTERFERON ALFA-2A
     Indication: CHRONIC HEPATITIS C
     Route: 058
     Dates: start: 20120516
  6. PEGINTRON [Concomitant]
     Active Substance: PEGINTERFERON ALFA-2B
  7. PROCRIT [Concomitant]
     Active Substance: ERYTHROPOIETIN
     Route: 042

REACTIONS (3)
  - Headache [Unknown]
  - Dry mouth [Unknown]
  - Pyrexia [Unknown]
